FAERS Safety Report 6046772-4 (Version None)
Quarter: 2009Q1

REPORT INFORMATION
  Report Type: 
  Country: None (occurrence: None)
  Receive Date: 20090122
  Receipt Date: 20090116
  Transmission Date: 20090719
  Serious: Yes (Hospitalization)
  Sender: FDA-Public Use
  Company Number: A0635881A

PATIENT
  Age: 74 Year
  Sex: Female

DRUGS (7)
  1. REQUIP [Suspect]
     Indication: DRUG USE FOR UNKNOWN INDICATION
     Dosage: 4MG THREE TIMES PER DAY
     Route: 048
  2. AMITRIPTYLINE HCL [Concomitant]
     Route: 048
  3. COZAAR [Concomitant]
     Route: 048
  4. DICLOFENAC [Concomitant]
     Route: 048
  5. ASPIRIN [Concomitant]
     Route: 048
  6. LEVOTHYROXINE SODIUM [Concomitant]
     Route: 048
  7. PRAVASTATIN SODIUM [Concomitant]
     Route: 048

REACTIONS (6)
  - COUGH [None]
  - CREPITATIONS [None]
  - DECREASED APPETITE [None]
  - DYSPNOEA [None]
  - HAEMOPTYSIS [None]
  - PULMONARY FIBROSIS [None]
